FAERS Safety Report 14974602 (Version 1)
Quarter: 2018Q2

REPORT INFORMATION
  Report Type: Spontaneous
  Country: JP (occurrence: JP)
  Receive Date: 20180605
  Receipt Date: 20180605
  Transmission Date: 20180711
  Serious: Yes (Hospitalization)
  Sender: FDA-Public Use
  Company Number: JP-ELI_LILLY_AND_COMPANY-JP201805012902

PATIENT
  Age: 85 Year
  Sex: Male

DRUGS (2)
  1. CYRAMZA [Suspect]
     Active Substance: RAMUCIRUMAB
     Indication: ADENOCARCINOMA
     Dosage: 8 MG/KG, CYCLICAL
     Route: 041
     Dates: start: 201802
  2. DOCETAXEL. [Suspect]
     Active Substance: DOCETAXEL
     Indication: ADENOCARCINOMA
     Dosage: 48 MG/M2, CYCLICAL
     Route: 041
     Dates: start: 201802

REACTIONS (1)
  - Interstitial lung disease [Unknown]

NARRATIVE: CASE EVENT DATE: 201804
